FAERS Safety Report 24938005 (Version 3)
Quarter: 2025Q3

REPORT INFORMATION
  Report Type: Report from Study
  Country: BR (occurrence: BR)
  Receive Date: 20250206
  Receipt Date: 20250825
  Transmission Date: 20251020
  Serious: Yes (Other)
  Sender: AMGEN
  Company Number: BR-AMGEN-BRASL2025020401

PATIENT
  Age: 50 Year
  Sex: Female

DRUGS (10)
  1. VECTIBIX [Suspect]
     Active Substance: PANITUMUMAB
     Indication: Colorectal cancer metastatic
     Dosage: UNK UNK, Q2WK
     Route: 040
     Dates: start: 20250106, end: 202501
  2. VECTIBIX [Suspect]
     Active Substance: PANITUMUMAB
     Dosage: UNK UNK, Q2WK
     Route: 040
     Dates: start: 20250128
  3. VECTIBIX [Suspect]
     Active Substance: PANITUMUMAB
     Dosage: UNK, Q3WK
     Route: 040
     Dates: start: 2025
  4. PREGABALIN [Concomitant]
     Active Substance: PREGABALIN
     Dosage: 150 MILLIGRAM, BID (2 TABLETS A DAY)
  5. GABAPENTIN [Concomitant]
     Active Substance: GABAPENTIN
     Dosage: 600 MILLIGRAM, QD
  6. ZOLPIDEM [Concomitant]
     Active Substance: ZOLPIDEM TARTRATE
     Dosage: 10 MILLIGRAM, QD (AT NIGHT)
  7. VALSARTAN [Concomitant]
     Active Substance: VALSARTAN
     Dosage: 180 MILLIGRAM, BID
  8. PROPRANOLOL [Concomitant]
     Active Substance: PROPRANOLOL HYDROCHLORIDE
     Dosage: 40 MILLIGRAM, QD
  9. METAMIZOLE [Concomitant]
     Active Substance: METAMIZOLE
     Dosage: 1 GRAM, Q6H
  10. IBUPROFEN [Concomitant]
     Active Substance: IBUPROFEN
     Dosage: 600 MILLIGRAM, Q6H

REACTIONS (10)
  - Chest pain [Recovering/Resolving]
  - Colorectal cancer metastatic [Unknown]
  - Pain of skin [Not Recovered/Not Resolved]
  - Skin lesion [Not Recovered/Not Resolved]
  - Back pain [Recovering/Resolving]
  - Mucosal inflammation [Not Recovered/Not Resolved]
  - Acne [Not Recovered/Not Resolved]
  - Nausea [Not Recovered/Not Resolved]
  - Asthenia [Unknown]
  - Skin haemorrhage [Not Recovered/Not Resolved]

NARRATIVE: CASE EVENT DATE: 20250101
